FAERS Safety Report 10561627 (Version 3)
Quarter: 2020Q3

REPORT INFORMATION
  Report Type: Spontaneous
  Country: US (occurrence: US)
  Receive Date: 20141103
  Receipt Date: 20200701
  Transmission Date: 20201102
  Serious: Yes (Congenital Anomaly)
  Sender: FDA-Public Use
  Company Number: US-BIOMARINAP-US-2014-104507

PATIENT
  Sex: Male
  Weight: 5.05 kg

DRUGS (1)
  1. KUVAN [Suspect]
     Active Substance: SAPROPTERIN DIHYDROCHLORIDE
     Indication: PHENYLKETONURIA
     Dosage: 20 MG/KG, QD
     Route: 064

REACTIONS (3)
  - Hypertelorism of orbit [Not Recovered/Not Resolved]
  - Dysmorphism [Not Recovered/Not Resolved]
  - Abnormal palmar/plantar creases [Not Recovered/Not Resolved]

NARRATIVE: CASE EVENT DATE: 20140912
